FAERS Safety Report 20637310 (Version 2)
Quarter: 2022Q2

REPORT INFORMATION
  Report Type: Spontaneous
  Country: US (occurrence: US)
  Receive Date: 20220325
  Receipt Date: 20220523
  Transmission Date: 20220721
  Serious: No
  Sender: FDA-Public Use
  Company Number: US-PFIZER INC-2020498800

PATIENT
  Age: 76 Year
  Sex: Female
  Weight: 63.96 kg

DRUGS (3)
  1. PREMARIN [Suspect]
     Active Substance: ESTROGENS, CONJUGATED
     Dosage: 1.25 MG
  2. PREMARIN [Suspect]
     Active Substance: ESTROGENS, CONJUGATED
     Dosage: UNK, 1X/DAY
  3. LOVASTATIN [Concomitant]
     Active Substance: LOVASTATIN
     Indication: Blood pressure abnormal
     Dosage: UNK, 1X/DAY (ONCE A DAY)

REACTIONS (1)
  - Hot flush [Unknown]
